FAERS Safety Report 20305132 (Version 1)
Quarter: 2022Q1

REPORT INFORMATION
  Report Type: Spontaneous
  Country: GB (occurrence: GB)
  Receive Date: 20220106
  Receipt Date: 20220106
  Transmission Date: 20220423
  Serious: Yes (Other)
  Sender: FDA-Public Use
  Company Number: None

PATIENT
  Age: 18 Year
  Sex: Male
  Weight: 88 kg

DRUGS (6)
  1. CARBOPLATIN [Suspect]
     Active Substance: CARBOPLATIN
     Dosage: 10 MG/ML, UNK
     Dates: start: 20211222
  2. POLIDOCANOL\UREA [Concomitant]
     Active Substance: POLIDOCANOL\UREA
     Dosage: UNK UNK, AS NEEDED
     Dates: start: 20201102
  3. CLOBAZAM [Concomitant]
     Active Substance: CLOBAZAM
     Dosage: UNK UNK, 2X/DAY (TAKE HALF IN THE MORNING AND ONE AT NIGHT)
     Dates: start: 20201102
  4. EPILIM [Concomitant]
     Active Substance: VALPROATE SODIUM
     Dosage: 1 DF, 1X/DAY (TAKE IN THE MORNING)
     Dates: start: 20201102
  5. SCOPOLAMINE HYDROBROMIDE [Concomitant]
     Active Substance: SCOPOLAMINE HYDROBROMIDE
     Dosage: 1 DF, 2X/DAY (PATCH)
     Dates: start: 20201102
  6. MAGNESIUM GLYCEROPHOSPHATE [Concomitant]
     Active Substance: MAGNESIUM GLYCEROPHOSPHATE
     Dosage: 30 ML, 2X/DAY
     Dates: start: 20201102

REACTIONS (1)
  - Amnestic disorder [Unknown]

NARRATIVE: CASE EVENT DATE: 20211222
